FAERS Safety Report 8454262-4 (Version None)
Quarter: 2012Q2

REPORT INFORMATION
  Report Type: 
  Country: None (occurrence: None)
  Receive Date: 20120620
  Receipt Date: 20120618
  Transmission Date: 20120825
  Serious: Yes (Other)
  Sender: FDA-Public Use
  Company Number: US-TEVA-343805USA

PATIENT

DRUGS (2)
  1. ERYTHROMYCIN [Concomitant]
     Indication: ENDODONTIC PROCEDURE
  2. NEOMYCIN SULFATE TAB [Suspect]
     Indication: ENDODONTIC PROCEDURE

REACTIONS (1)
  - CLOSTRIDIAL INFECTION [None]
